FAERS Safety Report 7555605-6 (Version None)
Quarter: 2011Q2

REPORT INFORMATION
  Report Type: 
  Country: None (occurrence: None)
  Receive Date: 20110617
  Receipt Date: 20010222
  Transmission Date: 20111010
  Serious: Yes (Hospitalization)
  Sender: FDA-Public Use
  Company Number: PHEH2001US01952

PATIENT
  Sex: Male

DRUGS (3)
  1. EXELON [Suspect]
     Dosage: 3 MG, BID
     Route: 048
     Dates: start: 20000713, end: 20010101
  2. RISPERDAL [Concomitant]
     Dosage: UNK, UNK
  3. EXELON [Suspect]
     Dosage: 1.5 MG, BID
     Dates: start: 20010101

REACTIONS (1)
  - PNEUMONIA [None]
